FAERS Safety Report 4837145-8 (Version None)
Quarter: 2005Q4

REPORT INFORMATION
  Report Type: 
  Country: None (occurrence: None)
  Receive Date: 20051122
  Receipt Date: 20051114
  Transmission Date: 20060501
  Serious: Yes (Life-Threatening)
  Sender: FDA-Public Use
  Company Number: 2005-133371-NL

PATIENT
  Age: 28 Year
  Sex: Male

DRUGS (5)
  1. MIRTAZAPINE [Suspect]
     Dosage: 30 MG/45 MG
     Dates: start: 20050322, end: 20050518
  2. MIRTAZAPINE [Suspect]
     Dosage: 30 MG/45 MG
     Dates: start: 20050519, end: 20050602
  3. VALPROATE SODIUM [Suspect]
     Indication: AFFECTIVE DISORDER
     Dosage: 2 DF QD
     Dates: start: 20050504, end: 20050602
  4. VALPROATE SODIUM [Suspect]
     Indication: BIPOLAR DISORDER
     Dosage: 2 DF QD
     Dates: start: 20050504, end: 20050602
  5. ALPRAZOLAM [Concomitant]

REACTIONS (7)
  - AMNESIA [None]
  - CONDITION AGGRAVATED [None]
  - DEPRESSED LEVEL OF CONSCIOUSNESS [None]
  - HEADACHE [None]
  - LOSS OF CONSCIOUSNESS [None]
  - MEMORY IMPAIRMENT [None]
  - ROAD TRAFFIC ACCIDENT [None]
